FAERS Safety Report 21759494 (Version 1)
Quarter: 2022Q4

REPORT INFORMATION
  Report Type: Spontaneous
  Country: CN (occurrence: CN)
  Receive Date: 20221221
  Receipt Date: 20221221
  Transmission Date: 20230112
  Serious: Yes (Hospitalization)
  Sender: FDA-Public Use
  Company Number: CN-JNJFOC-20221225283

PATIENT
  Age: 80 Year
  Sex: Male

DRUGS (2)
  1. ERLEADA [Suspect]
     Active Substance: APALUTAMIDE
     Indication: Prostate cancer
     Route: 048
     Dates: start: 20220615, end: 20220916
  2. ZOLADEX [Suspect]
     Active Substance: GOSERELIN ACETATE
     Indication: Prostate cancer
     Dosage: Q28
     Route: 058
     Dates: start: 20220615, end: 20220916

REACTIONS (3)
  - Shock [Unknown]
  - Infection [Unknown]
  - Drug eruption [Unknown]

NARRATIVE: CASE EVENT DATE: 20220801
